FAERS Safety Report 10468736 (Version 1)
Quarter: 2014Q3

REPORT INFORMATION
  Report Type: Spontaneous
  Country: US (occurrence: US)
  Receive Date: 20140922
  Receipt Date: 20140922
  Transmission Date: 20150326
  Serious: Yes (Death, Hospitalization)
  Sender: FDA-Public Use
  Company Number: PHHY2014US120560

PATIENT
  Age: 21 Year
  Sex: Female

DRUGS (4)
  1. PHENYTOIN. [Suspect]
     Active Substance: PHENYTOIN
     Indication: EPILEPSY
  2. LAMOTRIGINE. [Suspect]
     Active Substance: LAMOTRIGINE
     Indication: EPILEPSY
  3. PHENOBARBITAL. [Concomitant]
     Active Substance: PHENOBARBITAL
     Indication: EPILEPSY
  4. LEVETIRACETAM. [Concomitant]
     Active Substance: LEVETIRACETAM
     Indication: EPILEPSY

REACTIONS (28)
  - Colitis [Fatal]
  - Abdominal pain [Fatal]
  - Hepatitis [Fatal]
  - Pancreatitis [Fatal]
  - Thrombocytopenia [Fatal]
  - Cachexia [Unknown]
  - Histiocytosis haematophagic [Fatal]
  - Pancytopenia [Fatal]
  - Tachycardia [Fatal]
  - Large intestinal ulcer [Unknown]
  - Gastric haemorrhage [Unknown]
  - Rash [Fatal]
  - Gastric ulcer [Unknown]
  - Multi-organ failure [Fatal]
  - Vomiting [Fatal]
  - Infection [Unknown]
  - Eosinophilia [Fatal]
  - Pyrexia [Fatal]
  - Enterocolitis [Fatal]
  - Nausea [Fatal]
  - Drug reaction with eosinophilia and systemic symptoms [Fatal]
  - Hypotension [Fatal]
  - Serum ferritin increased [Fatal]
  - Malnutrition [Unknown]
  - Rectal ulcer [Unknown]
  - Natural killer cell count decreased [Fatal]
  - Gastrointestinal disorder [Fatal]
  - Diarrhoea [Fatal]
